FAERS Safety Report 9164544 (Version 1)
Quarter: 2013Q1

REPORT INFORMATION
  Report Type: Spontaneous
  Country: US (occurrence: US)
  Receive Date: 20130315
  Receipt Date: 20130315
  Transmission Date: 20140127
  Serious: Yes (Hospitalization)
  Sender: FDA-Public Use
  Company Number: PHEH2013US006048

PATIENT
  Sex: 0

DRUGS (1)
  1. CLOZARIL [Suspect]

REACTIONS (1)
  - Cellulitis [Unknown]
